FAERS Safety Report 16678166 (Version 2)
Quarter: 2020Q2

REPORT INFORMATION
  Report Type: Spontaneous
  Country: US (occurrence: US)
  Receive Date: 20190807
  Receipt Date: 20200402
  Transmission Date: 20200713
  Serious: Yes (Death, Hospitalization)
  Sender: FDA-Public Use
  Company Number: US-PFIZER INC-06-NIP00005

PATIENT
  Age: 67 Year
  Sex: Male

DRUGS (8)
  1. RITUXIMAB. [Suspect]
     Active Substance: RITUXIMAB
     Indication: CHRONIC LYMPHOCYTIC LEUKAEMIA
     Dosage: 375 MG/M2, CYCLIC (ON DAYS 3 AND 5)
     Dates: start: 20051228, end: 20060123
  2. RITUXIMAB. [Suspect]
     Active Substance: RITUXIMAB
     Dosage: 375 MG/M2, CYCLIC (SUBSEQUENT CYCLES (2-6))
  3. ACICLOVIR [Concomitant]
     Active Substance: ACYCLOVIR
     Dosage: 800 MG, 2X/DAY
  4. RITUXIMAB. [Suspect]
     Active Substance: RITUXIMAB
     Dosage: 100 MG, CYCLIC (ON DAY 1)
  5. CYCLOPHOSPHAMIDE. [Suspect]
     Active Substance: CYCLOPHOSPHAMIDE
     Indication: CHRONIC LYMPHOCYTIC LEUKAEMIA
     Dosage: 600 MG/M2, CYCLIC (ON DAY 1) (ON A 21-DAY 6-CYCLE SCHEDULE)
     Route: 042
     Dates: start: 20051228, end: 20060123
  6. BACTRIM DS [Concomitant]
     Active Substance: SULFAMETHOXAZOLE\TRIMETHOPRIM
     Dosage: UNK, ALTERNATE DAY (Q.O.D.)
  7. PREDNISONE. [Concomitant]
     Active Substance: PREDNISONE
     Dosage: UNK
  8. PENTOSTATIN. [Suspect]
     Active Substance: PENTOSTATIN
     Indication: CHRONIC LYMPHOCYTIC LEUKAEMIA
     Dosage: 4 MG/M2, CYCLIC (ON DAY 1) (ON A 21-DAY 6-CYCLE SCHEDULE)
     Route: 042
     Dates: start: 20051228, end: 20060123

REACTIONS (2)
  - Renal failure [Fatal]
  - Acute respiratory distress syndrome [Fatal]

NARRATIVE: CASE EVENT DATE: 20060125
